FAERS Safety Report 7062328-9 (Version None)
Quarter: 2010Q4

REPORT INFORMATION
  Report Type: 
  Country: None (occurrence: None)
  Receive Date: 20101026
  Receipt Date: 20101011
  Transmission Date: 20110411
  Serious: Yes (Hospitalization, Other)
  Sender: FDA-Public Use
  Company Number: PHHY2010FR68726

PATIENT
  Sex: Female

DRUGS (9)
  1. ESIDRIX [Suspect]
     Dosage: 25 MG, QD
     Route: 048
  2. TEGRETOL [Suspect]
     Indication: EPILEPSY
     Dosage: 200 MG, TID
     Route: 048
  3. URBANYL [Suspect]
     Indication: PARTIAL SEIZURES
     Dosage: 10 MG, BID
     Dates: start: 20100821
  4. TEMESTA [Suspect]
     Dosage: 1 MG, QD
  5. TRIATEC [Suspect]
     Dosage: 5 MG, QD
  6. AMLODIPINE [Suspect]
     Dosage: 5 MG, QD
  7. TAHOR [Concomitant]
     Dosage: 20 MG, QD
  8. KARDEGIC [Concomitant]
     Dosage: 75 MG, QD
  9. STAGID [Concomitant]
     Dosage: 700 MG

REACTIONS (15)
  - AMNESTIC DISORDER [None]
  - ASTHENIA [None]
  - BLOOD PRESSURE DIASTOLIC DECREASED [None]
  - CAROTID ARTERY STENOSIS [None]
  - COGNITIVE DISORDER [None]
  - DISORIENTATION [None]
  - FALL [None]
  - FATIGUE [None]
  - HAEMATOMA [None]
  - MICROCYTIC ANAEMIA [None]
  - ORTHOSTATIC HYPOTENSION [None]
  - PYREXIA [None]
  - SUBDURAL HAEMATOMA [None]
  - VENTRICULAR EXTRASYSTOLES [None]
  - WOUND [None]
